FAERS Safety Report 5130410-9 (Version None)
Quarter: 2006Q4

REPORT INFORMATION
  Report Type: 
  Country: None (occurrence: None)
  Receive Date: 20061017
  Receipt Date: 20061017
  Transmission Date: 20070319
  Serious: Yes (Other)
  Sender: FDA-Public Use
  Company Number: None

PATIENT

DRUGS (2)
  1. SUFENTANIL CITRATE [Suspect]
     Indication: ANALGESIC EFFECT
     Dosage: 5-10MCG BOLUS DOSE IT
     Route: 037
     Dates: start: 20060922, end: 20060922
  2. SUFENTANIL CITRATE [Suspect]
     Indication: LABOUR PAIN
     Dosage: 5-10MCG BOLUS DOSE IT
     Route: 037
     Dates: start: 20060922, end: 20060922

REACTIONS (4)
  - ANAESTHETIC COMPLICATION [None]
  - BRADYCARDIA FOETAL [None]
  - DRUG EXPOSURE DURING PREGNANCY [None]
  - PRURITUS [None]
